FAERS Safety Report 16916360 (Version 3)
Quarter: 2020Q1

REPORT INFORMATION
  Report Type: Report from Study
  Country: US (occurrence: US)
  Receive Date: 20191014
  Receipt Date: 20200309
  Transmission Date: 20200409
  Serious: Yes (Death, Hospitalization)
  Sender: FDA-Public Use
  Company Number: US-EXELIXIS-CABO-19024416

PATIENT
  Sex: Male
  Weight: 136.05 kg

DRUGS (20)
  1. POTASSIUM CITRATE. [Concomitant]
     Active Substance: POTASSIUM CITRATE
  2. ERYTHROMYCIN. [Concomitant]
     Active Substance: ERYTHROMYCIN
  3. METRONIDAZOLE. [Concomitant]
     Active Substance: METRONIDAZOLE
  4. PREDNISONE. [Concomitant]
     Active Substance: PREDNISONE
  5. HUMALOG [Concomitant]
     Active Substance: INSULIN LISPRO
  6. CIPROFLOXACIN. [Concomitant]
     Active Substance: CIPROFLOXACIN
  7. DOXAZOSIN [Concomitant]
     Active Substance: DOXAZOSIN MESYLATE
  8. CABOMETYX [Suspect]
     Active Substance: CABOZANTINIB S-MALATE
     Dosage: 60 MG, QD
     Route: 048
     Dates: start: 201910
  9. ADVIL [Concomitant]
     Active Substance: IBUPROFEN
  10. INLYTA [Concomitant]
     Active Substance: AXITINIB
  11. AMLODIPINE BESYLATE. [Concomitant]
     Active Substance: AMLODIPINE BESYLATE
  12. METOPROLOL TARTRATE. [Concomitant]
     Active Substance: METOPROLOL TARTRATE
  13. XARELTO [Concomitant]
     Active Substance: RIVAROXABAN
  14. PREDNISOLONE ACETATE. [Concomitant]
     Active Substance: PREDNISOLONE ACETATE
  15. MUPIROCIN. [Concomitant]
     Active Substance: MUPIROCIN
  16. LACTULOSE. [Concomitant]
     Active Substance: LACTULOSE
  17. NOVOLOG [Concomitant]
     Active Substance: INSULIN ASPART
  18. CABOMETYX [Suspect]
     Active Substance: CABOZANTINIB S-MALATE
     Indication: RENAL CELL CARCINOMA
     Dosage: 60 MG, QD
     Route: 048
     Dates: start: 20190913
  19. IMODIUM A-D [Concomitant]
     Active Substance: LOPERAMIDE HYDROCHLORIDE
     Dosage: UNK
  20. ONDANSETRON [Concomitant]
     Active Substance: ONDANSETRON

REACTIONS (4)
  - Diverticulitis [Recovering/Resolving]
  - Hypotension [Recovering/Resolving]
  - Death [Fatal]
  - Rectal haemorrhage [Recovering/Resolving]
